FAERS Safety Report 10368688 (Version 2)
Quarter: 2014Q3

REPORT INFORMATION
  Report Type: Report from Study
  Country: CZ (occurrence: CZ)
  Receive Date: 20140807
  Receipt Date: 20140821
  Transmission Date: 20150326
  Serious: Yes (Death, Hospitalization)
  Sender: FDA-Public Use
  Company Number: CZ-ACTELION-A-CH2014-103154

PATIENT
  Age: 49 Year
  Sex: Female

DRUGS (6)
  1. TRACLEER [Suspect]
     Active Substance: BOSENTAN\BOSENTAN MONOHYDRATE
     Dosage: 125 MG, BID
     Route: 048
     Dates: end: 20130725
  2. PRENESSA [Concomitant]
     Active Substance: PERINDOPRIL
     Dosage: UNK
     Dates: start: 2014
  3. TRACLEER [Suspect]
     Active Substance: BOSENTAN\BOSENTAN MONOHYDRATE
     Dosage: 62.5 MG, BID
     Route: 048
     Dates: start: 20121119
  4. TRACLEER [Suspect]
     Active Substance: BOSENTAN\BOSENTAN MONOHYDRATE
     Dosage: 125 MG, BID
     Route: 048
     Dates: start: 20130927, end: 20130930
  5. TRACLEER [Suspect]
     Active Substance: BOSENTAN\BOSENTAN MONOHYDRATE
     Indication: SCLERODERMA ASSOCIATED DIGITAL ULCER
     Dosage: 125 MG, BID
     Route: 048
     Dates: start: 20131030, end: 20140726
  6. MEDROL [Concomitant]
     Active Substance: METHYLPREDNISOLONE
     Dosage: UNK
     Dates: start: 2004

REACTIONS (6)
  - Sudden cardiac death [Fatal]
  - Ventricular arrhythmia [Fatal]
  - Obstructive airways disorder [Unknown]
  - Malaise [Unknown]
  - Interstitial lung disease [Unknown]
  - Fatigue [Unknown]

NARRATIVE: CASE EVENT DATE: 2013
